FAERS Safety Report 5025901-5 (Version None)
Quarter: 2006Q2

REPORT INFORMATION
  Report Type: 
  Country: None (occurrence: None)
  Receive Date: 20060612
  Receipt Date: 20060612
  Transmission Date: 20061013
  Serious: No
  Sender: FDA-Public Use
  Company Number: None

PATIENT
  Age: 68 Year
  Sex: Male

DRUGS (6)
  1. NIACIN [Suspect]
     Indication: HYPERCHOLESTEROLAEMIA
     Dosage: 500 MG TID PO
     Dates: start: 19970101, end: 20040830
  2. NIACIN [Suspect]
     Indication: TRANSIENT ISCHAEMIC ATTACK
     Dosage: 500 MG TID PO
     Dates: start: 19970101, end: 20040830
  3. ECOTRIN [Concomitant]
  4. MULTIVITAMIN [Concomitant]
  5. VIT C [Concomitant]
  6. K [Concomitant]

REACTIONS (18)
  - ABDOMINAL PAIN [None]
  - ALANINE AMINOTRANSFERASE INCREASED [None]
  - ANOREXIA [None]
  - ASCITES [None]
  - ASPARTATE AMINOTRANSFERASE INCREASED [None]
  - BLOOD ALKALINE PHOSPHATASE INCREASED [None]
  - BLOOD BILIRUBIN INCREASED [None]
  - BODY TEMPERATURE DECREASED [None]
  - CHROMATURIA [None]
  - DIVERTICULITIS [None]
  - DIVERTICULITIS INTESTINAL HAEMORRHAGIC [None]
  - GALLBLADDER DISORDER [None]
  - GASTROINTESTINAL DISORDER [None]
  - HAEMORRHOIDAL HAEMORRHAGE [None]
  - JAUNDICE [None]
  - OEDEMA [None]
  - RECTAL HAEMORRHAGE [None]
  - VOMITING [None]
